FAERS Safety Report 26008576 (Version 1)
Quarter: 2025Q4

REPORT INFORMATION
  Report Type: Spontaneous
  Country: US (occurrence: US)
  Receive Date: 20251106
  Receipt Date: 20251106
  Transmission Date: 20260117
  Serious: No
  Sender: INSUD PHARMA
  Company Number: US-INSUD PHARMA-2510US09008

PATIENT

DRUGS (3)
  1. SLYND [Suspect]
     Active Substance: DROSPIRENONE
     Indication: Product used for unknown indication
     Dosage: UNK, QD
     Route: 048
     Dates: start: 2025
  2. SLYND [Suspect]
     Active Substance: DROSPIRENONE
     Dosage: 2.5 PACKS BACK TO BACK
     Route: 048
     Dates: start: 2025, end: 2025
  3. SLYND [Suspect]
     Active Substance: DROSPIRENONE
     Dosage: UNK, QD
     Route: 048
     Dates: start: 202501, end: 2025

REACTIONS (4)
  - Nausea [Recovered/Resolved]
  - Product use issue [Unknown]
  - Intermenstrual bleeding [Not Recovered/Not Resolved]
  - Maternal exposure during breast feeding [Unknown]

NARRATIVE: CASE EVENT DATE: 20250101
